FAERS Safety Report 8418968-5 (Version None)
Quarter: 2012Q2

REPORT INFORMATION
  Report Type: 
  Country: None (occurrence: None)
  Receive Date: 20120607
  Receipt Date: 20120603
  Transmission Date: 20120825
  Serious: Yes (Other)
  Sender: FDA-Public Use
  Company Number: PHEH2012US009593

PATIENT
  Sex: Female
  Weight: 99 kg

DRUGS (14)
  1. CELEBREX [Concomitant]
     Indication: ARTHRITIS
     Dosage: 200 MG, QD
  2. GLEEVEC [Suspect]
     Dosage: 800 MG, DAILY
     Route: 048
     Dates: start: 20111010
  3. ROBAXIN [Concomitant]
     Dosage: 1 DF, QID
     Route: 048
  4. GLEEVEC [Suspect]
     Indication: GASTROINTESTINAL STROMAL TUMOUR
     Dosage: 400 MG, UNK
  5. GLEEVEC [Suspect]
     Dosage: 400 MG, DAILY
     Route: 048
     Dates: start: 20100715
  6. FOSAMAX [Concomitant]
     Dosage: 1 DF, QW
     Route: 048
  7. OXYCODONE HCL [Concomitant]
     Indication: PAIN
     Dosage: 10 MG, EVERY 4 HOURS
     Route: 048
  8. DURAGESIC-100 [Concomitant]
     Indication: PAIN
     Dosage: 100 UG, EVERY 3 DAYS
     Route: 062
  9. EFFEXOR XR [Concomitant]
     Dosage: 75 MG, DAILY
     Route: 048
  10. NEURONTIN [Concomitant]
     Dosage: 1 DF, Q6H
     Route: 048
  11. GABAPENTIN [Concomitant]
     Indication: NEURALGIA
     Dosage: 300 MG, UNK
     Route: 048
  12. EFFEXOR XR [Concomitant]
     Dosage: 150 MG, DAILY
     Route: 048
  13. EFFEXOR [Concomitant]
     Indication: DEPRESSION
     Dosage: 225 MG, QD
     Route: 048
  14. COMPAZINE [Concomitant]
     Dosage: 2 DF, Q6H
     Route: 048

REACTIONS (12)
  - NEOPLASM MALIGNANT [None]
  - METASTASES TO LIVER [None]
  - SPINAL OSTEOARTHRITIS [None]
  - ABDOMINAL PAIN [None]
  - FATIGUE [None]
  - ARTHRALGIA [None]
  - RENAL CYST [None]
  - NAUSEA [None]
  - ARTHRITIS [None]
  - PAIN [None]
  - NEOPLASM PROGRESSION [None]
  - INCORRECT STORAGE OF DRUG [None]
